FAERS Safety Report 8573367-0 (Version None)
Quarter: 2012Q3

REPORT INFORMATION
  Report Type: 
  Country: None (occurrence: None)
  Receive Date: 20120806
  Receipt Date: 20120731
  Transmission Date: 20120928
  Serious: Yes (Other)
  Sender: FDA-Public Use
  Company Number: GB-BRISTOL-MYERS SQUIBB COMPANY-16822736

PATIENT
  Age: 50 Year
  Sex: Male

DRUGS (7)
  1. TRAMADOL HCL [Suspect]
  2. INFUMORPH [Suspect]
     Dosage: CAPS
  3. HYDROXYUREA [Suspect]
     Dates: start: 20110105
  4. GABAPENTIN [Suspect]
  5. NAPROXEN [Suspect]
  6. ACETAMINOPHEN [Concomitant]
  7. ORAMORPH SR [Suspect]
     Dosage: STRENGTH:ORAMORPH10MG/5ML
     Route: 048

REACTIONS (1)
  - AMNESIA [None]
